FAERS Safety Report 18657668 (Version 1)
Quarter: 2020Q4

REPORT INFORMATION
  Report Type: Spontaneous
  Country: FR (occurrence: FR)
  Receive Date: 20201223
  Receipt Date: 20201223
  Transmission Date: 20210114
  Serious: Yes (Death)
  Sender: FDA-Public Use
  Company Number: NVSC2020FR339060

PATIENT
  Age: 70 Year
  Sex: Male
  Weight: 71.5 kg

DRUGS (8)
  1. MIDAZOLAM. [Suspect]
     Active Substance: MIDAZOLAM
     Indication: SEDATIVE THERAPY
     Dosage: 50 MG, QD (LAST DOSE WAS ON 05 DEC 2020)
     Route: 042
     Dates: start: 20201121
  2. TAZOCILLINE [Suspect]
     Active Substance: PIPERACILLIN SODIUM\TAZOBACTAM SODIUM
     Indication: LUNG DISORDER
     Dosage: 12 G, QD (4 G/500 MG)
     Route: 042
     Dates: start: 20201127, end: 20201204
  3. VFEND [Suspect]
     Active Substance: VORICONAZOLE
     Indication: ASPERGILLUS INFECTION
     Dosage: 6 MG/KG, QD
     Route: 042
     Dates: start: 20201202, end: 20201204
  4. FUROSEMIDE. [Suspect]
     Active Substance: FUROSEMIDE
     Indication: ACUTE KIDNEY INJURY
     Dosage: 125 MG, QD
     Route: 042
     Dates: start: 20201127, end: 20201203
  5. DUPHALAC [Suspect]
     Active Substance: LACTULOSE
     Indication: CONSTIPATION
     Dosage: 6 DF, QD (LAST DOSE WAS ON 05 DEC 2020)
     Route: 048
     Dates: start: 20201121
  6. SUFENTANIL [Suspect]
     Active Substance: SUFENTANIL
     Indication: SEDATIVE THERAPY
     Dosage: 3 ML, QH (LAST DOSE WAS ON 05 DEC 2020)
     Route: 042
     Dates: start: 20201121
  7. TRACRIUM [Suspect]
     Active Substance: ATRACURIUM BESYLATE
     Indication: NEUROMUSCULAR BLOCKING THERAPY
     Dosage: 100 MG, QH (LAST DOSE WAS ON 05 DEC 2020)
     Route: 042
     Dates: start: 20201121
  8. LINEZOLIDE [Suspect]
     Active Substance: LINEZOLID
     Indication: LUNG DISORDER
     Dosage: 1200 MG, QD
     Route: 042
     Dates: start: 20201127, end: 20201204

REACTIONS (1)
  - Renal failure [Fatal]

NARRATIVE: CASE EVENT DATE: 20201202
